FAERS Safety Report 18814191 (Version 1)
Quarter: 2021Q1

REPORT INFORMATION
  Report Type: Spontaneous
  Country: CN (occurrence: CN)
  Receive Date: 20210201
  Receipt Date: 20210201
  Transmission Date: 20210419
  Serious: Yes (Other)
  Sender: FDA-Public Use
  Company Number: CN-LUPIN PHARMACEUTICALS INC.-2021-00826

PATIENT
  Age: 55 Year
  Sex: Male

DRUGS (6)
  1. INTERFERON ALFA 2B [Suspect]
     Active Substance: INTERFERON ALFA-2B
     Indication: COVID-19
     Dosage: 500000 UNIT, BIW
     Dates: start: 20200526, end: 20200710
  2. LOPINAVIR/RITONAVIR [Suspect]
     Active Substance: LOPINAVIR\RITONAVIR
     Indication: COVID-19
     Dosage: UNK
     Route: 065
     Dates: start: 202002
  3. THYMOPENTIN [Suspect]
     Active Substance: THYMOPENTIN
     Indication: COVID-19
     Dosage: UNK
     Route: 065
     Dates: start: 202002
  4. HYDROXYCHLOROQUINE [Suspect]
     Active Substance: HYDROXYCHLOROQUINE
     Dosage: 200 MILLIGRAM, BIW ON THE FOLLOWING DAY
     Route: 065
     Dates: start: 202004, end: 20200424
  5. HYDROXYCHLOROQUINE [Suspect]
     Active Substance: HYDROXYCHLOROQUINE
     Indication: COVID-19
     Dosage: 400 MILLIGRAM, BIW ON THE FIRST DAY
     Route: 065
     Dates: start: 20200416, end: 202004
  6. THYMALFASIN [Suspect]
     Active Substance: THYMALFASIN
     Indication: COVID-19
     Dosage: 1.6 MILLIGRAM, BIW
     Route: 065
     Dates: start: 20200407, end: 20200511

REACTIONS (1)
  - Off label use [Unknown]

NARRATIVE: CASE EVENT DATE: 202002
